FAERS Safety Report 9371758 (Version 1)
Quarter: 2013Q2

REPORT INFORMATION
  Report Type: Spontaneous
  Country: TR (occurrence: TR)
  Receive Date: 20130627
  Receipt Date: 20130627
  Transmission Date: 20140414
  Serious: Yes (Hospitalization)
  Sender: FDA-Public Use
  Company Number: TR-MYLANLABS-2013S1013592

PATIENT
  Age: 52 Year
  Sex: Male

DRUGS (3)
  1. CLOZAPINE [Suspect]
     Indication: MAJOR DEPRESSION
     Route: 065
     Dates: start: 2010
  2. RISPERIDONE [Concomitant]
     Indication: MAJOR DEPRESSION
     Route: 065
     Dates: start: 2007
  3. PAROXETINE [Concomitant]
     Indication: MAJOR DEPRESSION
     Route: 065
     Dates: start: 2007

REACTIONS (2)
  - Neuroleptic malignant syndrome [Recovered/Resolved]
  - Catatonia [Recovered/Resolved]
